FAERS Safety Report 9118264 (Version 1)
Quarter: 2013Q1

REPORT INFORMATION
  Report Type: Spontaneous
  Country: DK (occurrence: DK)
  Receive Date: 20130128
  Receipt Date: 20130128
  Transmission Date: 20140127
  Serious: Yes (Death)
  Sender: FDA-Public Use
  Company Number: DK-PFIZER INC-2013028109

PATIENT
  Age: 34 Year
  Sex: Male
  Weight: 90 kg

DRUGS (15)
  1. OXYCODONE HYDROCHLORIDE [Suspect]
     Indication: BACK PAIN
     Dosage: 10 MG, AS NEEDED
  2. VENLAFAXINE HYDROCHLORIDE [Interacting]
     Dosage: 150 MG, 1X/DAY
     Dates: start: 200511, end: 200707
  3. VENLAFAXINE HYDROCHLORIDE [Interacting]
     Dosage: 150 MG ONCE DAILY AND 75 MG ONCE DAILY
     Dates: start: 200707, end: 200905
  4. VENLAFAXINE HYDROCHLORIDE [Interacting]
     Dosage: 150 MG, 2X/DAY
     Dates: start: 200905
  5. PREGABALIN [Concomitant]
     Dosage: 300 MG, 1X/DAY
  6. PANTOPRAZOLE [Concomitant]
     Dosage: 20 MG, 1X/DAY
  7. QUETIAPINE [Concomitant]
     Dosage: 100 MG, 2X/DAY
  8. SIMVASTATIN [Concomitant]
     Dosage: 80 MG, 1X/DAY
  9. INSULIN DETEMIR [Concomitant]
     Indication: TYPE 1 DIABETES MELLITUS
     Dosage: 10 IU, 1X/DAY
  10. PHENOXYMETHYLPENICILLIN [Concomitant]
     Dosage: 1 MILLION IU, 3X/DAY
  11. DIAZEPAM [Concomitant]
     Dosage: 10 MG, AS NEEDED
  12. NITRAZEPAM [Concomitant]
     Dosage: 2.5 MG, AS NEEDED
  13. HALOPERIDOL [Concomitant]
     Dosage: 5 MG, AS NEEDED
  14. ZOLPIDEM [Concomitant]
     Dosage: 10 MG, AS NEEDED
  15. ETODOLAC [Concomitant]
     Dosage: 300 MG, AS NEEDED

REACTIONS (3)
  - Drug interaction [Fatal]
  - Toxicity to various agents [Fatal]
  - Alcohol use [Fatal]
